FAERS Safety Report 7622767-1 (Version None)
Quarter: 2011Q3

REPORT INFORMATION
  Report Type: 
  Country: None (occurrence: None)
  Receive Date: 20110712
  Receipt Date: 20110627
  Transmission Date: 20111222
  Serious: Yes (Death)
  Sender: FDA-Public Use
  Company Number: JP-2011-10234

PATIENT
  Age: 61 Year
  Sex: Male
  Weight: 59 kg

DRUGS (16)
  1. SAMSCA [Suspect]
     Indication: CARDIAC FAILURE
     Dosage: 7.5 MG MILLIGRAM(S), QD, ORAL 15 MG MILLIGRAM(S), QD, ORAL
     Route: 048
     Dates: start: 20110105, end: 20110105
  2. SAMSCA [Suspect]
     Indication: CARDIAC FAILURE
     Dosage: 7.5 MG MILLIGRAM(S), QD, ORAL 15 MG MILLIGRAM(S), QD, ORAL
     Route: 048
     Dates: start: 20110106, end: 20110111
  3. ASPIRIN [Concomitant]
  4. MOXIFLOXACIN HCL [Concomitant]
  5. LASIX [Concomitant]
  6. PIMOBENDAN (PIMOBENDAN) [Concomitant]
  7. TICLOPIDINE HCL [Concomitant]
  8. MILLIS (GLYCERYL TRINITRATE) [Concomitant]
  9. GRACEVIT (SITAFLOXACIN HYDRATE) [Concomitant]
  10. TAZOBACTAM: PIPERACILLIN (TAZOBACTAM: PIPERACILLIN) [Concomitant]
  11. FORSENID (SENNOSIDE) [Concomitant]
  12. LISINOPRIL [Concomitant]
  13. OMEPRAZOLE [Concomitant]
  14. ALDACTONE [Concomitant]
  15. TANADOPA (DOCARPAMINE) [Concomitant]
  16. SIMVASTATIN [Concomitant]

REACTIONS (2)
  - CARDIAC FAILURE CONGESTIVE [None]
  - BLOOD SODIUM INCREASED [None]
